FAERS Safety Report 9383162 (Version 1)
Quarter: 2013Q3

REPORT INFORMATION
  Report Type: Spontaneous
  Country: US (occurrence: US)
  Receive Date: 20130704
  Receipt Date: 20130704
  Transmission Date: 20140515
  Serious: Yes (Hospitalization)
  Sender: FDA-Public Use
  Company Number: US-BRISTOL-MYERS SQUIBB COMPANY-19065945

PATIENT
  Age: 63 Year
  Sex: Female

DRUGS (3)
  1. BYETTA [Suspect]
     Route: 058
  2. LANTUS [Concomitant]
  3. HUMALOG [Concomitant]

REACTIONS (2)
  - Fall [Recovered/Resolved with Sequelae]
  - Back injury [Recovered/Resolved with Sequelae]
